FAERS Safety Report 6768637-2 (Version None)
Quarter: 2010Q2

REPORT INFORMATION
  Report Type: 
  Country: None (occurrence: None)
  Receive Date: 20100614
  Receipt Date: 20100511
  Transmission Date: 20101027
  Serious: Yes (Other)
  Sender: FDA-Public Use
  Company Number: CHPA2008US15170

PATIENT
  Age: 75 Year
  Sex: Male

DRUGS (1)
  1. ASPIRIN [Suspect]
     Indication: ARTHRITIS
     Dosage: 4 DF, QD
     Route: 048

REACTIONS (3)
  - INTENTIONAL DRUG MISUSE [None]
  - NO ADVERSE EVENT [None]
  - OFF LABEL USE [None]
